FAERS Safety Report 6931923-7 (Version None)
Quarter: 2010Q3

REPORT INFORMATION
  Report Type: 
  Country: None (occurrence: None)
  Receive Date: 20100819
  Receipt Date: 20100811
  Transmission Date: 20110219
  Serious: Yes (Other)
  Sender: FDA-Public Use
  Company Number: US-BAXTER-2010BH021238

PATIENT
  Age: 21 Year
  Sex: Female
  Weight: 57 kg

DRUGS (21)
  1. GAMMAGARD LIQUID [Suspect]
     Indication: IMMUNODEFICIENCY COMMON VARIABLE
     Route: 042
     Dates: start: 20100617, end: 20100617
  2. GAMMAGARD LIQUID [Suspect]
     Indication: PRIMARY IMMUNODEFICIENCY SYNDROME
     Route: 042
     Dates: start: 20100617, end: 20100617
  3. GAMMAGARD LIQUID [Suspect]
     Route: 042
     Dates: start: 20100708, end: 20100708
  4. GAMMAGARD LIQUID [Suspect]
     Route: 042
     Dates: start: 20100708, end: 20100708
  5. GAMMAGARD LIQUID [Suspect]
     Route: 042
     Dates: start: 20100729, end: 20100729
  6. GAMMAGARD LIQUID [Suspect]
     Route: 042
     Dates: start: 20100729, end: 20100729
  7. ADVAIR DISKUS 100/50 [Concomitant]
     Indication: ASTHMA
     Route: 055
  8. ALBUTEROL [Concomitant]
     Indication: ASTHMA
  9. ZYRTEC [Concomitant]
     Indication: ASTHMA
     Route: 048
  10. ACETAMINOPHEN [Concomitant]
     Indication: PREMEDICATION
  11. DIPHENHYDRAMINE [Concomitant]
     Indication: PREMEDICATION
     Dates: start: 20100617
  12. LEVOTHYROXINE [Concomitant]
     Indication: THYROID DISORDER
     Route: 048
  13. PANTOPRAZOLE [Concomitant]
     Route: 048
  14. SINGULAIR [Concomitant]
     Indication: ASTHMA
     Route: 048
  15. TRAMADOL [Concomitant]
     Indication: RESTLESSNESS
     Route: 048
  16. METHOCARBAMOL [Concomitant]
     Indication: MUSCLE SPASMS
     Route: 048
  17. AZELASTINE HCL [Concomitant]
  18. FLUCONAZOLE [Concomitant]
  19. SPRINTEC [Concomitant]
  20. FLUTICASONE PROPIONATE [Concomitant]
  21. IBUPROFEN [Concomitant]
     Indication: PREMEDICATION

REACTIONS (4)
  - BLOOD PRESSURE INCREASED [None]
  - BODY TEMPERATURE INCREASED [None]
  - FATIGUE [None]
  - MALAISE [None]
